FAERS Safety Report 19681472 (Version 1)
Quarter: 2021Q3

REPORT INFORMATION
  Report Type: Spontaneous
  Country: BR (occurrence: BR)
  Receive Date: 20210810
  Receipt Date: 20210810
  Transmission Date: 20211014
  Serious: Yes (Other)
  Sender: FDA-Public Use
  Company Number: BR-BAYER-2021-187108

PATIENT
  Age: 71 Year
  Sex: Male
  Weight: 64 kg

DRUGS (2)
  1. XOFIGO [Suspect]
     Active Substance: RADIUM RA-223 DICHLORIDE
     Indication: HORMONE-REFRACTORY PROSTATE CANCER
     Dosage: UNK
     Route: 042
     Dates: start: 20200320, end: 20200820
  2. XOFIGO [Suspect]
     Active Substance: RADIUM RA-223 DICHLORIDE
     Indication: METASTASES TO BONE

REACTIONS (4)
  - Blood alkaline phosphatase increased [None]
  - Metastases to lymph nodes [None]
  - Metastases to bone [None]
  - Prostatic specific antigen increased [None]

NARRATIVE: CASE EVENT DATE: 202004
